FAERS Safety Report 6504053-6 (Version None)
Quarter: 2009Q4

REPORT INFORMATION
  Report Type: 
  Country: None (occurrence: None)
  Receive Date: 20091216
  Receipt Date: 20091216
  Transmission Date: 20100525
  Serious: Yes (Hospitalization)
  Sender: FDA-Public Use
  Company Number: None

PATIENT
  Age: 74 Year
  Sex: Male
  Weight: 98 kg

DRUGS (1)
  1. SIMVASTATIN [Suspect]
     Indication: HYPERLIPIDAEMIA
     Dosage: 40 MG HS PO
     Route: 048
     Dates: start: 20080320, end: 20091105

REACTIONS (6)
  - ABDOMINAL PAIN [None]
  - AZOTAEMIA [None]
  - EXCORIATION [None]
  - FALL [None]
  - RHABDOMYOLYSIS [None]
  - URINARY TRACT INFECTION [None]
